FAERS Safety Report 8491465 (Version 2)
Quarter: 2012Q4

REPORT INFORMATION
  Report Type: 
  Country: US (occurrence: US)
  Receive Date: 20120403
  Receipt Date: 20121206
  Transmission Date: 20130627
  Serious: Yes (Other)
  Sender: FDA-Public Use
  Company Number: US-AMGEN-USASP2012019634

PATIENT
  Age: 60 Year
  Sex: Female

DRUGS (3)
  1. ENBREL [Suspect]
     Indication: RHEUMATOID ARTHRITIS
     Dosage: 50 mg, qwk
     Dates: start: 20110605
  2. TREXALL [Concomitant]
     Dosage: 2.5 mg, UNK
     Dates: start: 201106, end: 2012
  3. METHOTREXATE [Concomitant]
     Dosage: 2.5 mg, UNK
     Dates: start: 201106, end: 2012

REACTIONS (9)
  - Haemangioma of liver [Not Recovered/Not Resolved]
  - Hepatic cyst [Not Recovered/Not Resolved]
  - Splenic lesion [Not Recovered/Not Resolved]
  - Renal cyst [Not Recovered/Not Resolved]
  - Pulmonary mass [Not Recovered/Not Resolved]
  - Thyroid neoplasm [Not Recovered/Not Resolved]
  - Breast lump removal [Recovered/Resolved]
  - Therapeutic response decreased [Unknown]
  - Impaired healing [Recovered/Resolved]
